FAERS Safety Report 9908270 (Version 2)
Quarter: 2014Q1

REPORT INFORMATION
  Report Type: Report from Study
  Country: FR (occurrence: FR)
  Receive Date: 20140219
  Receipt Date: 20140221
  Transmission Date: 20141002
  Serious: Yes (Hospitalization)
  Sender: FDA-Public Use
  Company Number: FR-ROCHE-1346256

PATIENT
  Sex: Female

DRUGS (6)
  1. RITUXIMAB [Suspect]
     Indication: RHEUMATOID ARTHRITIS
     Route: 042
     Dates: start: 20080219
  2. METHOTREXATE [Concomitant]
     Indication: RHEUMATOID ARTHRITIS
     Route: 065
  3. METHOTREXATE [Concomitant]
     Route: 065
  4. CORTANCYL [Concomitant]
     Route: 065
  5. CORTANCYL [Concomitant]
     Route: 065
  6. CORTANCYL [Concomitant]
     Route: 065

REACTIONS (4)
  - Arthrodesis [Unknown]
  - Acquired claw toe [Unknown]
  - Respiratory tract infection [Recovered/Resolved]
  - Influenza [Recovered/Resolved]
